FAERS Safety Report 10765238 (Version 1)
Quarter: 2015Q1

REPORT INFORMATION
  Report Type: Spontaneous
  Country: US (occurrence: None)
  Receive Date: 20150204
  Receipt Date: 20150204
  Transmission Date: 20150721
  Serious: No
  Sender: FDA-Public Use
  Company Number: None

PATIENT

DRUGS (1)
  1. MECLIZINE [Suspect]
     Active Substance: MECLIZINE\MECLIZINE HYDROCHLORIDE
     Indication: FEELING ABNORMAL
     Dosage: NO LONGER HAVE BOTTLE
     Route: 048

REACTIONS (3)
  - Head injury [None]
  - Fall [None]
  - Balance disorder [None]
